FAERS Safety Report 13422585 (Version 1)
Quarter: 2017Q2

REPORT INFORMATION
  Report Type: Spontaneous
  Country: US (occurrence: US)
  Receive Date: 20170407
  Receipt Date: 20170407
  Transmission Date: 20170830
  Serious: No
  Sender: FDA-Public Use
  Company Number: None

PATIENT
  Age: 62 Year
  Sex: Female

DRUGS (1)
  1. HUMIRA [Suspect]
     Active Substance: ADALIMUMAB
     Indication: PRODUCT USED FOR UNKNOWN INDICATION
     Route: 058
     Dates: start: 20170213

REACTIONS (5)
  - Feeling abnormal [None]
  - Musculoskeletal disorder [None]
  - Injection site swelling [None]
  - Injection site erythema [None]
  - Chills [None]

NARRATIVE: CASE EVENT DATE: 20170318
